FAERS Safety Report 7057485-4 (Version None)
Quarter: 2010Q4

REPORT INFORMATION
  Report Type: 
  Country: None (occurrence: None)
  Receive Date: 20101022
  Receipt Date: 20101012
  Transmission Date: 20110411
  Serious: Yes (Hospitalization, Disabling, Other)
  Sender: FDA-Public Use
  Company Number: PHEH2007US03348

PATIENT
  Sex: Male
  Weight: 107.48 kg

DRUGS (50)
  1. AREDIA [Suspect]
     Dosage: 90 MG IV
     Route: 042
     Dates: start: 20000601
  2. ZOMETA [Suspect]
     Dosage: 4 MG, QMO
     Route: 042
  3. WELLBUTRIN [Concomitant]
     Dosage: 150 MG, BID
  4. ZOCOR [Concomitant]
     Dosage: 20 MG, QD
  5. NICOTROL [Concomitant]
  6. TIMOPTIC [Concomitant]
  7. NAPROSYN [Concomitant]
     Dosage: 500 MG, BID
  8. CHEMOTHERAPEUTICS NOS [Concomitant]
     Dosage: UNK
     Dates: start: 20000601
  9. NEFAZODONE HCL [Concomitant]
  10. BUPROPION [Concomitant]
  11. SIMVASTATIN [Concomitant]
  12. COUMADIN [Concomitant]
  13. PENICILLIN ^GRUNENTHAL^ [Concomitant]
     Dosage: FOR DENTAL WORK
     Dates: start: 20000201
  14. ASPIRIN [Concomitant]
  15. HEPARIN [Concomitant]
  16. PREVACID [Concomitant]
  17. VITAMIN B-12 [Concomitant]
  18. FOLIC ACID [Concomitant]
  19. ATENOLOL [Concomitant]
  20. SERZONE [Concomitant]
  21. ALTACE [Concomitant]
  22. LIPITOR [Concomitant]
  23. PROVIGIL [Concomitant]
  24. NEUPOGEN [Concomitant]
  25. TICLID [Concomitant]
  26. DIPYRIDAMOLE [Concomitant]
  27. PROTONIX [Concomitant]
  28. NEURONTIN [Concomitant]
  29. ADVAIR DISKUS 100/50 [Concomitant]
     Dosage: 250/50, BID
  30. CRESTOR [Concomitant]
     Dosage: 20 MG, DAILY
  31. FIBERCON (POLYCARBOPHIL CALCIUM) [Concomitant]
     Dosage: UNK,
  32. TRICOR [Concomitant]
     Dosage: 48 Q DAY,
  33. XALATAN [Concomitant]
  34. COMBIVENT [Concomitant]
     Dosage: 2 PUFFS QID
  35. TRAVATAN [Concomitant]
  36. SULFAMETHOXAZOLE [Concomitant]
     Dosage: UNK, BID
  37. PROTONIX [Concomitant]
     Dosage: 40 QHS
  38. EFFEXOR [Concomitant]
     Dosage: 75MG, THREE TABLETS IN THE MORNING
  39. LORAZEPAM [Concomitant]
     Dosage: UNK, PRN
  40. PNEUMOVAX 23 [Concomitant]
     Dosage: ONE SHOT
  41. VORICONAZOLE [Concomitant]
     Dosage: 400MG,
  42. OXYCODONE [Concomitant]
  43. ONDANSETRON [Concomitant]
     Indication: NAUSEA
     Dosage: 8MG, TID
  44. NYSTATIN [Concomitant]
  45. LOPERAMIDE [Concomitant]
  46. GABAPENTIN [Concomitant]
  47. ACYCLOVIR SODIUM [Concomitant]
  48. MIRTAZAPINE [Concomitant]
  49. CALCIUM CARBONATE [Concomitant]
  50. VELCADE [Concomitant]

REACTIONS (66)
  - ABDOMINAL PAIN LOWER [None]
  - ADRENAL DISORDER [None]
  - ANXIETY [None]
  - ARTERIOSCLEROSIS CORONARY ARTERY [None]
  - ASTIGMATISM [None]
  - ATELECTASIS [None]
  - BALANCE DISORDER [None]
  - BENIGN PROSTATIC HYPERPLASIA [None]
  - BLINDNESS UNILATERAL [None]
  - BLOOD IMMUNOGLOBULIN A DECREASED [None]
  - BLOOD IMMUNOGLOBULIN G DECREASED [None]
  - BRONCHIECTASIS [None]
  - BULIMIA NERVOSA [None]
  - CELLULITIS [None]
  - CHRONIC OBSTRUCTIVE PULMONARY DISEASE [None]
  - COLONIC POLYP [None]
  - COUGH [None]
  - CUTIS LAXA [None]
  - DECREASED INTEREST [None]
  - DEMYELINATION [None]
  - DIARRHOEA [None]
  - DIVERTICULUM [None]
  - DIZZINESS [None]
  - DYSPNOEA [None]
  - DYSTHYMIC DISORDER [None]
  - FACIAL PAIN [None]
  - FATIGUE [None]
  - FLUID OVERLOAD [None]
  - GENERAL PHYSICAL HEALTH DETERIORATION [None]
  - GOITRE [None]
  - HALLUCINATION, VISUAL [None]
  - HEPATIC CYST [None]
  - HERNIA REPAIR [None]
  - HYPERLIPIDAEMIA [None]
  - HYPERTENSION [None]
  - INTERVERTEBRAL DISC PROTRUSION [None]
  - LIP SWELLING [None]
  - LUNG INFILTRATION [None]
  - LYMPHADENOPATHY MEDIASTINAL [None]
  - MEIBOMIANITIS [None]
  - MENISCUS LESION [None]
  - MYOPIA [None]
  - NAUSEA [None]
  - NODULE [None]
  - OESOPHAGEAL RUPTURE [None]
  - OPEN ANGLE GLAUCOMA [None]
  - OSTEOARTHRITIS [None]
  - OSTEONECROSIS OF JAW [None]
  - PAIN [None]
  - PANIC ATTACK [None]
  - PINGUECULA [None]
  - PNEUMONIA [None]
  - PRESBYOPIA [None]
  - PRODUCTIVE COUGH [None]
  - PULMONARY OEDEMA [None]
  - PYREXIA [None]
  - RENAL CYST [None]
  - RESPIRATORY DISTRESS [None]
  - SEPSIS SYNDROME [None]
  - SINUSITIS [None]
  - STEM CELL TRANSPLANT [None]
  - SURGERY [None]
  - SWELLING FACE [None]
  - TOOTH EXTRACTION [None]
  - UPPER RESPIRATORY TRACT INFECTION [None]
  - VOMITING [None]
